FAERS Safety Report 4801209-5 (Version None)
Quarter: 2005Q4

REPORT INFORMATION
  Report Type: 
  Country: None (occurrence: None)
  Receive Date: 20051011
  Receipt Date: 20050927
  Transmission Date: 20060501
  Serious: Yes (Hospitalization, Other)
  Sender: FDA-Public Use
  Company Number: 12303

PATIENT
  Age: 74 Year
  Sex: Male
  Weight: 70 kg

DRUGS (12)
  1. FLUOROURACIL [Suspect]
     Indication: BILIARY NEOPLASM
     Dosage: 375 MG/M2 OTH  IV
     Route: 042
     Dates: start: 20050704
  2. LEUCOVORIN [Suspect]
     Indication: BILIARY NEOPLASM
     Dosage: 25 MG/M2 OTH  IV
     Route: 042
     Dates: start: 20050704
  3. CHLORSSTRAMINE [Concomitant]
  4. NIFEDIPINE [Concomitant]
  5. ASPIRIN [Concomitant]
  6. ACETAMINOPHEN W/ CODEINE [Concomitant]
  7. XAXPLAE [Concomitant]
  8. METOCLOPRAMIDE [Concomitant]
  9. CORSODYL [Concomitant]
  10. DIFFLAM [Concomitant]
  11. LANSOPRAZOLE [Concomitant]
  12. CIPROFLOXACIN [Concomitant]

REACTIONS (5)
  - ABDOMINAL PAIN [None]
  - DEVICE RELATED INFECTION [None]
  - FEBRILE NEUTROPENIA [None]
  - NAUSEA [None]
  - PYREXIA [None]
